FAERS Safety Report 7878842-X (Version None)
Quarter: 2011Q4

REPORT INFORMATION
  Report Type: 
  Country: None (occurrence: None)
  Receive Date: 20111101
  Receipt Date: 20111021
  Transmission Date: 20120403
  Serious: Yes (Hospitalization)
  Sender: FDA-Public Use
  Company Number: GB-TYCO HEALTHCARE/MALLINCKRODT-T201102042

PATIENT
  Sex: Male

DRUGS (2)
  1. INSULIN [Concomitant]
  2. OPTIRAY 160 [Suspect]
     Indication: COMPUTERISED TOMOGRAM
     Dosage: 100 ML, SINGLE
     Route: 042
     Dates: start: 20111010, end: 20111010

REACTIONS (2)
  - SPEECH DISORDER [None]
  - CONFUSIONAL STATE [None]
